FAERS Safety Report 12554825 (Version 2)
Quarter: 2016Q3

REPORT INFORMATION
  Report Type: Spontaneous
  Country: US (occurrence: US)
  Receive Date: 20160713
  Receipt Date: 20160729
  Transmission Date: 20161109
  Serious: Yes (Hospitalization, Other)
  Sender: FDA-Public Use
  Company Number: US-ALKERMES INC.-ALK-2016-001803

PATIENT
  Sex: Male

DRUGS (1)
  1. VIVITROL [Suspect]
     Active Substance: NALTREXONE
     Indication: DRUG DEPENDENCE
     Dosage: 380 MG, QMO
     Route: 030

REACTIONS (6)
  - Sepsis [Unknown]
  - Injection site reaction [Unknown]
  - Injection site pain [Unknown]
  - Hypertension [Unknown]
  - Injection site abscess [Unknown]
  - Injection site induration [Unknown]

NARRATIVE: CASE EVENT DATE: 20160626
